FAERS Safety Report 4719316-4 (Version None)
Quarter: 2005Q3

REPORT INFORMATION
  Report Type: 
  Country: None (occurrence: None)
  Receive Date: 20050721
  Receipt Date: 20050224
  Transmission Date: 20060218
  Serious: No
  Sender: FDA-Public Use
  Company Number: US-GLAXOSMITHKLINE-A0547173A

PATIENT
  Age: 38 Year
  Sex: Male
  Weight: 80.5 kg

DRUGS (3)
  1. MALARONE [Suspect]
     Indication: PROPHYLAXIS
     Dosage: 1TAB PER DAY
     Route: 048
     Dates: start: 20040601, end: 20050217
  2. CIPRO [Concomitant]
  3. FLAGYL [Concomitant]

REACTIONS (5)
  - CONSTIPATION [None]
  - DIARRHOEA [None]
  - PROSTATITIS [None]
  - SIGMOIDITIS [None]
  - WEIGHT DECREASED [None]
